FAERS Safety Report 7514741-0 (Version None)
Quarter: 2011Q2

REPORT INFORMATION
  Report Type: 
  Country: None (occurrence: None)
  Receive Date: 20110601
  Receipt Date: 20110519
  Transmission Date: 20111010
  Serious: Yes (Life-Threatening, Hospitalization)
  Sender: FDA-Public Use
  Company Number: US-BAYER-201013068NA

PATIENT
  Age: 23 Year
  Sex: Female
  Weight: 88 kg

DRUGS (7)
  1. ACIPHEX [Concomitant]
  2. YAZ [Suspect]
     Indication: CONTRACEPTION
     Route: 048
     Dates: start: 20040401, end: 20080101
  3. VICODIN [Concomitant]
  4. AMBIEN [Concomitant]
  5. ACETAMINOPHEN [Concomitant]
  6. YASMIN [Suspect]
     Indication: CONTRACEPTION
     Route: 048
     Dates: start: 20040401, end: 20080101
  7. IBUPROFEN [Concomitant]

REACTIONS (3)
  - THROMBOSIS [None]
  - THROMBOSIS MESENTERIC VESSEL [None]
  - PORTAL VEIN THROMBOSIS [None]
